FAERS Safety Report 8780426 (Version 1)
Quarter: 2012Q4

REPORT INFORMATION
  Report Type: Spontaneous
  Country: US (occurrence: None)
  Receive Date: 20120830
  Receipt Date: 20120830
  Transmission Date: 20130627
  Serious: Yes (Other)
  Sender: FDA-Public Use
  Company Number: 2012AP002538

PATIENT
  Sex: Female

DRUGS (1)
  1. SALBUTAMOL [Suspect]
     Indication: DIFFICULTY BREATHING
     Route: 045
     Dates: start: 20120815

REACTIONS (2)
  - Eyelid oedema [None]
  - Blepharitis [None]
